FAERS Safety Report 18582895 (Version 1)
Quarter: 2020Q4

REPORT INFORMATION
  Report Type: Report from Study
  Country: CO (occurrence: CO)
  Receive Date: 20201205
  Receipt Date: 20201205
  Transmission Date: 20210114
  Serious: Yes (Hospitalization)
  Sender: FDA-Public Use
  Company Number: PHHY2018CO103439

PATIENT
  Sex: Male
  Weight: 18 kg

DRUGS (7)
  1. FOLIC ACID. [Concomitant]
     Active Substance: FOLIC ACID
     Indication: ANAEMIA
     Dosage: 1 MG, QD
     Route: 048
  2. JADENU [Suspect]
     Active Substance: DEFERASIROX
     Dosage: 1 DF, (180 MG ON MON, WED, FRI AND SUN AND 360 MG ON TUE, THUR AND SAT)
     Route: 048
     Dates: end: 20201020
  3. JADENU [Suspect]
     Active Substance: DEFERASIROX
     Dosage: 360 MG, QD
     Route: 048
     Dates: start: 20201020
  4. JADENU [Suspect]
     Active Substance: DEFERASIROX
     Indication: APLASTIC ANAEMIA
     Dosage: 360 MG, QD
     Route: 048
  5. HYDROXYUREA. [Concomitant]
     Active Substance: HYDROXYUREA
     Indication: ANAEMIA
     Dosage: 500 MG, QD
     Route: 048
  6. JADENU [Suspect]
     Active Substance: DEFERASIROX
     Dosage: 1 DF, (MON, WED AND FRI ONE TABLET OF 360 MG DAILY AND TUE, THU AND SAT ONE TABLET OF 180 MG DAILY)
     Route: 048
  7. JADENU [Suspect]
     Active Substance: DEFERASIROX
     Dosage: 180 MG, QD
     Route: 048
     Dates: start: 20180816, end: 20190221

REACTIONS (10)
  - Pyrexia [Unknown]
  - Pharyngitis [Unknown]
  - Splenomegaly [Unknown]
  - Serum ferritin increased [Unknown]
  - Inappropriate schedule of product administration [Unknown]
  - Product prescribing error [Unknown]
  - Haemoglobin decreased [Unknown]
  - Blood iron increased [Unknown]
  - Blood bilirubin increased [Unknown]
  - Concomitant disease aggravated [Unknown]
